FAERS Safety Report 5713237-6 (Version None)
Quarter: 2008Q2

REPORT INFORMATION
  Report Type: 
  Country: None (occurrence: None)
  Receive Date: 20080422
  Receipt Date: 20000204
  Transmission Date: 20081010
  Serious: Yes (Death, Hospitalization)
  Sender: FDA-Public Use
  Company Number: US-ROCHE-228362

PATIENT
  Sex: Male
  Weight: 73.4 kg

DRUGS (9)
  1. CAPECITABINE [Suspect]
     Indication: PANCREATIC CARCINOMA
     Dosage: 14 DAYS ON 1 WEEK OFF CYCLE.
     Route: 048
     Dates: start: 19990623, end: 19991210
  2. PACLITAXEL [Suspect]
     Indication: PANCREATIC CARCINOMA
     Route: 042
     Dates: start: 19990623, end: 19991217
  3. ORAMORPH SR [Concomitant]
     Dates: start: 19990714
  4. MSIR [Concomitant]
  5. COMPAZINE [Concomitant]
     Dates: start: 19991008
  6. FLOMAX [Concomitant]
  7. ZOCOR [Concomitant]
  8. TICLID [Concomitant]
     Dates: start: 19980501
  9. INSULIN [Concomitant]
     Dates: start: 19990501

REACTIONS (5)
  - ABDOMINAL PAIN UPPER [None]
  - DEATH [None]
  - NAUSEA [None]
  - TREATMENT FAILURE [None]
  - VOMITING [None]
